FAERS Safety Report 17262983 (Version 1)
Quarter: 2020Q1

REPORT INFORMATION
  Report Type: Spontaneous
  Country: AT (occurrence: AT)
  Receive Date: 20200113
  Receipt Date: 20200113
  Transmission Date: 20200409
  Serious: Yes (Other)
  Sender: FDA-Public Use
  Company Number: AT-MYLANLABS-2019M1117581

PATIENT
  Age: 50 Year
  Sex: Female

DRUGS (6)
  1. RISPERDAL [Suspect]
     Active Substance: RISPERIDONE
     Indication: DEPRESSION
     Dosage: 2 MILLIGRAM
     Route: 048
     Dates: start: 20190807
  2. ZOLDEM [Concomitant]
     Active Substance: ZOLPIDEM TARTRATE
     Dosage: 10 MILLIGRAM
     Dates: start: 20190807
  3. ZOLDEM [Suspect]
     Active Substance: ZOLPIDEM TARTRATE
     Indication: PRODUCT USED FOR UNKNOWN INDICATION
     Dosage: 10 MILLIGRAM
     Dates: start: 201902
  4. PREGABALIN. [Suspect]
     Active Substance: PREGABALIN
     Indication: PRODUCT USED FOR UNKNOWN INDICATION
     Dosage: 600 MILLIGRAM
     Route: 065
     Dates: start: 20190811
  5. ZOLDEM [Suspect]
     Active Substance: ZOLPIDEM TARTRATE
     Dosage: 10 UNK
     Dates: start: 20190807
  6. SERTRALINE [Suspect]
     Active Substance: SERTRALINE HYDROCHLORIDE
     Indication: PRODUCT USED FOR UNKNOWN INDICATION
     Dosage: 50 MILLIGRAM, QD
     Route: 065
     Dates: start: 20190821, end: 20190824

REACTIONS (3)
  - Off label use [Unknown]
  - Product use in unapproved indication [Unknown]
  - Erythema [Recovered/Resolved]

NARRATIVE: CASE EVENT DATE: 20190807
